FAERS Safety Report 6745728-3 (Version None)
Quarter: 2010Q2

REPORT INFORMATION
  Report Type: 
  Country: None (occurrence: None)
  Receive Date: 20100528
  Receipt Date: 20100518
  Transmission Date: 20101027
  Serious: Yes (Disabling)
  Sender: FDA-Public Use
  Company Number: JP-ALLERGAN-1006890US

PATIENT

DRUGS (4)
  1. LUMIGAN [Suspect]
     Indication: GLAUCOMA
     Dosage: 1 GTT, QD
     Route: 047
     Dates: start: 20100507, end: 20100517
  2. RESCULA [Concomitant]
     Dosage: UNK
     Dates: end: 20100507
  3. KARY UNI [Concomitant]
  4. TRUSOPT [Concomitant]

REACTIONS (1)
  - MACULAR OEDEMA [None]
